FAERS Safety Report 4731592-0 (Version None)
Quarter: 2005Q3

REPORT INFORMATION
  Report Type: 
  Country: None (occurrence: None)
  Receive Date: 20050722
  Receipt Date: 20050503
  Transmission Date: 20060218
  Serious: Yes (Hospitalization)
  Sender: FDA-Public Use
  Company Number: USA-2005-0020117

PATIENT
  Age: 57 Year
  Sex: Female

DRUGS (2)
  1. PALLADONE [Suspect]
     Dosage: 12 MG, Q24H, ORAL
     Route: 048
  2. DURAGESIC-100 [Suspect]
     Dosage: 100 MCG, TRA
     Route: 062

REACTIONS (2)
  - DRUG WITHDRAWAL SYNDROME [None]
  - UNDERDOSE [None]
